FAERS Safety Report 6061884-7 (Version None)
Quarter: 2009Q1

REPORT INFORMATION
  Report Type: 
  Country: None (occurrence: None)
  Receive Date: 20090202
  Receipt Date: 20090120
  Transmission Date: 20090719
  Serious: Yes (Hospitalization, Other)
  Sender: FDA-Public Use
  Company Number: PHHY2009FR02454

PATIENT
  Sex: Female

DRUGS (9)
  1. STERDEX (NVO) [Suspect]
     Indication: CATARACT OPERATION
     Dosage: 1 DF, ONCE/SINGLE
     Dates: start: 20081013
  2. TETRACAINE 1% FAURE (NVO) [Suspect]
     Dosage: 1 DF, ONCE/SINGLE
     Dates: start: 20081013
  3. TROPICAMIDE (NVO) [Suspect]
     Indication: CATARACT OPERATION
     Dosage: 1 DF, ONCE/SINGLE
     Dates: start: 20081013
  4. ADRENALINE [Suspect]
     Indication: CATARACT OPERATION
     Dosage: 1 DF, ONCE/SINGLE
     Dates: start: 20081013
  5. NEOSYNEPHRINE 10% (NVO) [Suspect]
     Dosage: 1 DF, ONCE/SINGLE
     Dates: start: 20081013
  6. PILOCARPINE [Suspect]
     Indication: CATARACT OPERATION
     Dosage: 1 DF, ONCE/SINGLE
     Dates: start: 20081013
  7. OCUFEN [Suspect]
     Indication: CATARACT OPERATION
     Dosage: 1 DF, ONCE/SINGLE
     Dates: start: 20081013
  8. TOBRADEX [Suspect]
     Indication: CATARACT OPERATION
     Dosage: 1 DF, ONCE/SINGLE
     Dates: start: 20081013
  9. CARBOCAINE [Suspect]
     Indication: CATARACT OPERATION
     Dosage: 1 DF ONCE
     Dates: start: 20081013

REACTIONS (8)
  - DRUG INEFFECTIVE [None]
  - ENDOPHTHALMITIS [None]
  - IRIS ADHESIONS [None]
  - KERATITIS [None]
  - POST PROCEDURAL COMPLICATION [None]
  - UVEITIS [None]
  - VISUAL ACUITY REDUCED [None]
  - VITRITIS [None]
